FAERS Safety Report 21835020 (Version 13)
Quarter: 2025Q3

REPORT INFORMATION
  Report Type: Spontaneous
  Country: US (occurrence: US)
  Receive Date: 20230109
  Receipt Date: 20250923
  Transmission Date: 20251020
  Serious: No
  Sender: BIOGEN
  Company Number: US-BIOGEN-2022BI01101130

PATIENT
  Sex: Female

DRUGS (34)
  1. VUMERITY [Suspect]
     Active Substance: DIROXIMEL FUMARATE
     Indication: Multiple sclerosis
     Dosage: FOR 7 DAYS
     Route: 050
     Dates: start: 20220216, end: 20220228
  2. VUMERITY [Suspect]
     Active Substance: DIROXIMEL FUMARATE
     Dosage: TAKE 2 CAPSULES (462MG) BY MOUTH TWICE DAILY.
     Route: 050
     Dates: start: 20220301, end: 20220805
  3. VUMERITY [Suspect]
     Active Substance: DIROXIMEL FUMARATE
     Dosage: HALF DOSE?TAKE 1 CAPSULE BY MOUTH TWICE DAILY
     Route: 050
     Dates: start: 20220805
  4. BACLOFEN [Suspect]
     Active Substance: BACLOFEN
     Indication: Back pain
     Route: 050
  5. MAGNESIUM CITRATE [Concomitant]
     Active Substance: MAGNESIUM CITRATE
     Indication: Dyspepsia
     Route: 050
  6. LYRICA [Concomitant]
     Active Substance: PREGABALIN
     Route: 050
  7. ESTRIOL [Concomitant]
     Active Substance: ESTRIOL
     Route: 050
  8. RESTASIS [Concomitant]
     Active Substance: CYCLOSPORINE
     Route: 050
  9. FAMCICLOVIR [Concomitant]
     Active Substance: FAMCICLOVIR
     Route: 050
  10. ALBUTEROL [Concomitant]
     Active Substance: ALBUTEROL
     Route: 050
  11. VITAMIN E [Concomitant]
     Active Substance: .ALPHA.-TOCOPHEROL
     Route: 050
  12. VITAMIN D3 [Concomitant]
     Active Substance: CHOLECALCIFEROL
     Route: 050
  13. FLONASE ALLERGY RELIEF [Concomitant]
     Active Substance: FLUTICASONE PROPIONATE
     Route: 050
  14. ESCITALOPRAM OXALATE [Concomitant]
     Active Substance: ESCITALOPRAM OXALATE
     Route: 050
  15. ESCITALOPRAM [Concomitant]
     Active Substance: ESCITALOPRAM OXALATE
     Route: 050
  16. MINOXIDIL [Concomitant]
     Active Substance: MINOXIDIL
     Route: 050
  17. VITAMIN C [Concomitant]
     Active Substance: ASCORBIC ACID
     Route: 050
  18. LECITHIN [Concomitant]
     Active Substance: LECITHIN
     Route: 050
  19. AZELASTINE HYDROCHLORIDE [Concomitant]
     Active Substance: AZELASTINE HYDROCHLORIDE
     Route: 050
  20. FLAXSEED [Concomitant]
     Active Substance: FLAX SEED
     Route: 050
  21. LORATADINE [Concomitant]
     Active Substance: LORATADINE
     Route: 050
  22. CITALOPRAM [Concomitant]
     Active Substance: CITALOPRAM
     Indication: Depression
     Route: 050
  23. ZOFRAN [Concomitant]
     Active Substance: ONDANSETRON HYDROCHLORIDE
     Route: 050
  24. PANTOPRAZOLE SODIUM [Concomitant]
     Active Substance: PANTOPRAZOLE SODIUM
     Route: 050
  25. SUCRALFATE [Concomitant]
     Active Substance: SUCRALFATE
     Route: 050
  26. ACETAMINOPHEN\HYDROCODONE [Concomitant]
     Active Substance: ACETAMINOPHEN\HYDROCODONE
     Route: 050
  27. ADVAIR DISKUS [Concomitant]
     Active Substance: FLUTICASONE PROPIONATE\SALMETEROL XINAFOATE
     Route: 050
  28. MELATONIN [Concomitant]
     Active Substance: MELATONIN
     Route: 050
  29. MAGNESIUM [Concomitant]
     Active Substance: MAGNESIUM
     Route: 050
  30. ALUMINUM [Concomitant]
     Active Substance: ALUMINUM
     Route: 050
  31. SILICON DIOXIDE [Concomitant]
     Active Substance: SILICON DIOXIDE
     Route: 050
  32. PROBIOTICS NOS [Concomitant]
     Active Substance: PROBIOTICS NOS
     Route: 050
  33. CITRUCEL [Concomitant]
     Active Substance: METHYLCELLULOSE (4000 CPS)
     Route: 050
  34. NORTRIPTYLINE HYDROCHLORIDE [Concomitant]
     Active Substance: NORTRIPTYLINE HYDROCHLORIDE
     Route: 050

REACTIONS (19)
  - Underdose [Unknown]
  - Product dose omission issue [Unknown]
  - Gastrointestinal disorder [Not Recovered/Not Resolved]
  - Back pain [Not Recovered/Not Resolved]
  - Abdominal distension [Not Recovered/Not Resolved]
  - Constipation [Not Recovered/Not Resolved]
  - White blood cell count decreased [Not Recovered/Not Resolved]
  - Electric shock sensation [Not Recovered/Not Resolved]
  - Muscle spasticity [Not Recovered/Not Resolved]
  - Oropharyngeal pain [Not Recovered/Not Resolved]
  - Costochondritis [Unknown]
  - Gastrooesophageal reflux disease [Unknown]
  - Ear discomfort [Unknown]
  - Multiple sclerosis [Unknown]
  - Milk allergy [Unknown]
  - Blood test abnormal [Unknown]
  - Nausea [Not Recovered/Not Resolved]
  - Flushing [Not Recovered/Not Resolved]
  - Lymphocyte count decreased [Not Recovered/Not Resolved]

NARRATIVE: CASE EVENT DATE: 20220101
